FAERS Safety Report 9335170 (Version 1)
Quarter: 2013Q2

REPORT INFORMATION
  Report Type: Spontaneous
  Country: US (occurrence: US)
  Receive Date: 20130606
  Receipt Date: 20130606
  Transmission Date: 20140414
  Serious: Yes (Hospitalization, Disabling, Other)
  Sender: FDA-Public Use
  Company Number: US-009507513-2010SP017466

PATIENT
  Sex: Female
  Weight: 113.4 kg

DRUGS (1)
  1. NUVARING [Suspect]
     Indication: OVARIAN CYST
     Dates: start: 200805, end: 200807

REACTIONS (27)
  - Coagulopathy [Unknown]
  - Uterine leiomyoma [Unknown]
  - Ovarian cyst [Unknown]
  - Pulmonary mass [Not Recovered/Not Resolved]
  - Lymphadenopathy [Unknown]
  - Pulmonary embolism [Recovering/Resolving]
  - Transient ischaemic attack [Unknown]
  - Deep vein thrombosis [Recovered/Resolved]
  - Cardiac valve disease [Unknown]
  - Rheumatic disorder [Unknown]
  - Haemorrhagic disorder [Unknown]
  - Anxiety [Unknown]
  - Bronchitis [Unknown]
  - Oedema peripheral [Not Recovered/Not Resolved]
  - Migraine [Unknown]
  - Antiphospholipid antibodies positive [Not Recovered/Not Resolved]
  - Off label use [Unknown]
  - Hydrocephalus [Unknown]
  - Brain neoplasm [Unknown]
  - Neoplasm malignant [Unknown]
  - Endocarditis bacterial [Unknown]
  - Dizziness [Unknown]
  - Asthenia [Unknown]
  - Hypoaesthesia [Unknown]
  - Systemic lupus erythematosus [Unknown]
  - Deep vein thrombosis [Unknown]
  - Pulmonary embolism [Unknown]
